FAERS Safety Report 5399941-0 (Version None)
Quarter: 2007Q3

REPORT INFORMATION
  Report Type: 
  Country: None (occurrence: None)
  Receive Date: 20070730
  Receipt Date: 20070725
  Transmission Date: 20080115
  Serious: Yes (Disabling)
  Sender: FDA-Public Use
  Company Number: 980702-107054556

PATIENT
  Age: 47 Year
  Sex: Male

DRUGS (1)
  1. FLOXIN [Suspect]
     Indication: URETHRITIS
     Route: 048
     Dates: start: 19980414, end: 19980423

REACTIONS (2)
  - REITER'S SYNDROME [None]
  - TENDONITIS [None]
